FAERS Safety Report 7906195-7 (Version None)
Quarter: 2011Q4

REPORT INFORMATION
  Report Type: 
  Country: None (occurrence: None)
  Receive Date: 20111110
  Receipt Date: 20111028
  Transmission Date: 20120403
  Serious: Yes (Hospitalization)
  Sender: FDA-Public Use
  Company Number: US-BAYER-2011-106983

PATIENT
  Age: 34 Year
  Sex: Female

DRUGS (4)
  1. YASMIN [Suspect]
     Indication: CONTRACEPTION
     Dosage: UNK
     Dates: start: 20030101, end: 20050901
  2. YAZ [Suspect]
     Dosage: UNK
  3. PAXIL [Concomitant]
     Dosage: 20 MG, QOD
  4. PREVACID [Concomitant]
     Dosage: 30 MG, PRN

REACTIONS (5)
  - DISCOMFORT [None]
  - INCISION SITE HYPOAESTHESIA [None]
  - CHOLECYSTITIS CHRONIC [None]
  - ABDOMINAL PAIN UPPER [None]
  - SCAR [None]
